FAERS Safety Report 8181816-5 (Version None)
Quarter: 2012Q1

REPORT INFORMATION
  Report Type: 
  Country: None (occurrence: None)
  Receive Date: 20120302
  Receipt Date: 20120222
  Transmission Date: 20120608
  Serious: Yes (Hospitalization)
  Sender: FDA-Public Use
  Company Number: RU-ASTRAZENECA-2012SE13135

PATIENT
  Age: 64 Year
  Sex: Female

DRUGS (1)
  1. DIPRIVAN [Suspect]
     Route: 042

REACTIONS (3)
  - BRONCHOSPASM [None]
  - MULTI-ORGAN FAILURE [None]
  - ANAPHYLACTIC SHOCK [None]
